FAERS Safety Report 9080976 (Version 1)
Quarter: 2013Q1

REPORT INFORMATION
  Report Type: Spontaneous
  Country: US (occurrence: US)
  Receive Date: 20130130
  Receipt Date: 20130130
  Transmission Date: 20140127
  Serious: Yes (Hospitalization)
  Sender: FDA-Public Use
  Company Number: US-009507513-1301USA003844

PATIENT
  Age: 64 Year
  Sex: Female

DRUGS (8)
  1. SINGULAIR [Suspect]
     Indication: ASTHMA
  2. METICORTEN [Concomitant]
     Route: 048
  3. METICORTEN [Concomitant]
     Route: 048
  4. PROTOS (PROTOPORPHYRIN DISODIUM) [Concomitant]
     Route: 048
  5. [THERAPY UNSPECIFIED] [Concomitant]
     Route: 048
  6. ALENIA [Concomitant]
     Route: 048
  7. ALENIA [Concomitant]
     Route: 048
  8. NEXIUM [Suspect]
     Route: 048

REACTIONS (8)
  - Somnolence [Unknown]
  - Sinusitis [Unknown]
  - Osteoporosis [Unknown]
  - Intervertebral disc space narrowing [Unknown]
  - Increased appetite [Unknown]
  - Frontal sinus operation [Unknown]
  - Ear infection [Unknown]
  - Diarrhoea [Unknown]
